FAERS Safety Report 24047671 (Version 1)
Quarter: 2024Q3

REPORT INFORMATION
  Report Type: Spontaneous
  Country: JP (occurrence: JP)
  Receive Date: 20240703
  Receipt Date: 20240703
  Transmission Date: 20241017
  Serious: Yes (Hospitalization)
  Sender: EISAI
  Company Number: JP-Eisai-202403781_LEN-RCC_P_1

PATIENT
  Sex: Male

DRUGS (3)
  1. LENVIMA [Suspect]
     Active Substance: LENVATINIB
     Indication: Renal cell carcinoma
     Dosage: DOSE AND FREQUENCY UNKNOWN
     Route: 048
     Dates: start: 20231201
  2. KEYTRUDA [Suspect]
     Active Substance: PEMBROLIZUMAB
     Indication: Renal cell carcinoma
     Dosage: DOSE AND FREQUENCY UNKNOWN
     Route: 041
     Dates: start: 20231201, end: 202312
  3. KEYTRUDA [Suspect]
     Active Substance: PEMBROLIZUMAB
     Route: 041
     Dates: start: 202312

REACTIONS (1)
  - Enterocolitis [Not Recovered/Not Resolved]
